FAERS Safety Report 21769052 (Version 2)
Quarter: 2023Q1

REPORT INFORMATION
  Report Type: Spontaneous
  Country: ES (occurrence: ES)
  Receive Date: 20221222
  Receipt Date: 20230104
  Transmission Date: 20230418
  Serious: No
  Sender: FDA-Public Use
  Company Number: ES-UCBSA-2022072263

PATIENT
  Age: 60 Year
  Sex: Female

DRUGS (2)
  1. NEUPRO [Suspect]
     Active Substance: ROTIGOTINE
     Indication: Parkinson^s disease
     Dosage: 2MG USED LESS THAN 24 HOURS
     Route: 062
     Dates: start: 20221214, end: 20221214
  2. NEUPRO [Suspect]
     Active Substance: ROTIGOTINE
     Dosage: 2MG EVERY DAY
     Route: 062
     Dates: start: 202212

REACTIONS (4)
  - Product adhesion issue [Unknown]
  - Product use issue [Unknown]
  - Therapy interrupted [Unknown]
  - Underdose [Unknown]

NARRATIVE: CASE EVENT DATE: 20221214
